FAERS Safety Report 7085609-1 (Version None)
Quarter: 2010Q4

REPORT INFORMATION
  Report Type: 
  Country: None (occurrence: None)
  Receive Date: 20101105
  Receipt Date: 20101101
  Transmission Date: 20110411
  Serious: Yes (Other)
  Sender: FDA-Public Use
  Company Number: US-WYE-H18452910

PATIENT
  Sex: Male
  Weight: 123.49 kg

DRUGS (2)
  1. PRISTIQ [Suspect]
     Indication: DEPRESSION
     Route: 048
     Dates: start: 20070101
  2. GEODON [Suspect]
     Indication: DEPRESSION
     Route: 048
     Dates: start: 20080101

REACTIONS (10)
  - BRAIN CONTUSION [None]
  - CHEST PAIN [None]
  - CONDITION AGGRAVATED [None]
  - DROOLING [None]
  - HYPERTENSION [None]
  - HYPOAESTHESIA FACIAL [None]
  - NERVOUS SYSTEM DISORDER [None]
  - SPEECH DISORDER [None]
  - WEIGHT INCREASED [None]
  - WEIGHT LOSS POOR [None]
